FAERS Safety Report 6774970-0 (Version None)
Quarter: 2010Q2

REPORT INFORMATION
  Report Type: 
  Country: None (occurrence: None)
  Receive Date: 20100617
  Receipt Date: 20100604
  Transmission Date: 20101027
  Serious: Yes (Hospitalization)
  Sender: FDA-Public Use
  Company Number: US-ELI_LILLY_AND_COMPANY-US201006002905

PATIENT
  Sex: Female

DRUGS (6)
  1. CYMBALTA [Suspect]
     Indication: DEPRESSION
     Dosage: 30 MG, UNK
  2. FOLIC ACID [Concomitant]
  3. LOPRESSOR [Concomitant]
  4. DILAUDID [Concomitant]
  5. NEURONTIN [Concomitant]
  6. ATIVAN [Concomitant]

REACTIONS (3)
  - COLON CANCER [None]
  - INTESTINAL OBSTRUCTION [None]
  - OVARIAN CANCER [None]
